FAERS Safety Report 7104938-6 (Version None)
Quarter: 2010Q4

REPORT INFORMATION
  Report Type: 
  Country: None (occurrence: None)
  Receive Date: 20101110
  Receipt Date: 20101028
  Transmission Date: 20110411
  Serious: Yes (Death)
  Sender: FDA-Public Use
  Company Number: 021451

PATIENT
  Age: 19 Year
  Sex: Male

DRUGS (2)
  1. LEVETIRACETAM [Suspect]
  2. OXCARBAZEPINE [Concomitant]

REACTIONS (3)
  - CONVULSION [None]
  - OBSTRUCTIVE AIRWAYS DISORDER [None]
  - TRACHEOSTOMY MALFUNCTION [None]
